FAERS Safety Report 22525998 (Version 1)
Quarter: 2023Q2

REPORT INFORMATION
  Report Type: Spontaneous
  Country: KR (occurrence: KR)
  Receive Date: 20230606
  Receipt Date: 20230606
  Transmission Date: 20230722
  Serious: Yes (Hospitalization)
  Sender: FDA-Public Use
  Company Number: KR-ORGANON-O2305KOR003169

PATIENT
  Age: 66 Year
  Sex: Male
  Weight: 85 kg

DRUGS (16)
  1. COZAAR [Suspect]
     Active Substance: LOSARTAN POTASSIUM
     Dosage: 50 MILLIGRAM, FILM-COATED TABLET
     Route: 048
  2. MIRTAZAPINE [Concomitant]
     Active Substance: MIRTAZAPINE
     Dosage: 15 MILLIGRAM, FILM-COATED TABLET
     Route: 048
     Dates: start: 20170314
  3. MONTELUKAST SODIUM [Concomitant]
     Active Substance: MONTELUKAST SODIUM
     Dosage: 10 MILLIGRAM
     Route: 048
     Dates: start: 20171218
  4. ACYCLOVIR [Concomitant]
     Active Substance: ACYCLOVIR
     Dosage: 400 MILLIGRAM
     Route: 048
  5. ACETAMINOPHEN [Concomitant]
     Active Substance: ACETAMINOPHEN
     Dosage: 650 MILLIGRAM
     Dates: start: 20171218, end: 20180129
  6. CHLORPHENIRAMINE MALEATE [Concomitant]
     Active Substance: CHLORPHENIRAMINE MALEATE
     Dosage: 4 MILLIGRAM, ROUTE REPORTED AS VEIN
     Route: 042
  7. GABAPENTIN [Concomitant]
     Active Substance: GABAPENTIN
     Dosage: 100 MILLIGRAM
     Dates: start: 20170808
  8. METOCLOPRAMIDE [Concomitant]
     Active Substance: METOCLOPRAMIDE
     Dosage: 5 MILLIGRAM
     Dates: start: 20171219, end: 20171224
  9. FAMOTIDINE [Concomitant]
     Active Substance: FAMOTIDINE
     Dosage: 20 MILLIGRAM
     Dates: start: 20171219
  10. HYDROCORTISONE [Concomitant]
     Active Substance: HYDROCORTISONE
     Dosage: 100 MILLIGRAM
     Dates: start: 20181218
  11. AMBROXOL HYDROCHLORIDE [Concomitant]
     Active Substance: AMBROXOL HYDROCHLORIDE
     Dosage: 30 MILLIGRAM
     Dates: start: 20180220
  12. ATORVASTATIN CALCIUM [Concomitant]
     Active Substance: ATORVASTATIN CALCIUM
     Dosage: 20 MILLIGRAM
     Route: 048
  13. ALPRAZOLAM [Concomitant]
     Active Substance: ALPRAZOLAM
     Dosage: 0.25 MILLIGRAM, UNSCORED TABLET
     Route: 048
     Dates: start: 20170314
  14. CLONAZEPAM [Concomitant]
     Active Substance: CLONAZEPAM
     Dosage: 0.5 MILLIGRAM, UNSCORED TABLET
     Route: 048
     Dates: start: 20170314
  15. AMITRIPTYLINE HYDROCHLORIDE [Concomitant]
     Active Substance: AMITRIPTYLINE HYDROCHLORIDE
     Dosage: 5 MILLIGRAM
     Route: 048
     Dates: start: 20170314
  16. DEXAMETHASONE [Concomitant]
     Active Substance: DEXAMETHASONE
     Indication: Plasma cell myeloma
     Dosage: UNK
     Route: 048
     Dates: start: 20171218, end: 20180305

REACTIONS (1)
  - Pneumonia [Recovered/Resolved]

NARRATIVE: CASE EVENT DATE: 20180221
